FAERS Safety Report 5363205-1 (Version None)
Quarter: 2007Q2

REPORT INFORMATION
  Report Type: 
  Country: None (occurrence: None)
  Receive Date: 20070620
  Receipt Date: 20070618
  Transmission Date: 20071010
  Serious: Yes (Death)
  Sender: FDA-Public Use
  Company Number: PHBS2007IN10170

PATIENT
  Age: 14 Year
  Sex: Female

DRUGS (6)
  1. GLUCOSE [Concomitant]
     Route: 042
  2. ANTI-MALARIA [Concomitant]
  3. CIPLOX [Concomitant]
  4. DEXA [Concomitant]
  5. PARACETAMOL [Concomitant]
  6. VOVERAN [Suspect]
     Indication: ABDOMINAL PAIN
     Dosage: 2 ML, UNK
     Route: 030
     Dates: start: 20060921

REACTIONS (2)
  - INTERSTITIAL LUNG DISEASE [None]
  - SHOCK [None]
